FAERS Safety Report 14904113 (Version 1)
Quarter: 2018Q2

REPORT INFORMATION
  Report Type: Spontaneous
  Country: AT (occurrence: AT)
  Receive Date: 20180516
  Receipt Date: 20180516
  Transmission Date: 20180711
  Serious: Yes (Life-Threatening, Other)
  Sender: FDA-Public Use
  Company Number: AT-BAUSCH-BL-2018-014295

PATIENT
  Sex: Female

DRUGS (3)
  1. CISPLATIN. [Suspect]
     Active Substance: CISPLATIN
     Indication: HODGKIN^S DISEASE
     Dosage: 2 CYCLES
     Route: 065
     Dates: start: 201307
  2. DEXAMETHASONE. [Suspect]
     Active Substance: DEXAMETHASONE
     Indication: HODGKIN^S DISEASE
     Dosage: 2 CYCLES
     Route: 065
     Dates: start: 201307
  3. CYTARABINE. [Suspect]
     Active Substance: CYTARABINE
     Indication: HODGKIN^S DISEASE
     Dosage: HIGH-DOSE CYTOSINE-ARABINOSIDE, 2 CYCLES
     Route: 065
     Dates: start: 201307

REACTIONS (1)
  - Drug ineffective [Unknown]
